FAERS Safety Report 4901547-1 (Version None)
Quarter: 2006Q1

REPORT INFORMATION
  Report Type: 
  Country: None (occurrence: None)
  Receive Date: 20060206
  Receipt Date: 20050131
  Transmission Date: 20060701
  Serious: Yes (Hospitalization)
  Sender: FDA-Public Use
  Company Number: US-BRISTOL-MYERS SQUIBB COMPANY-12842977

PATIENT
  Age: 40 Year
  Sex: Female
  Weight: 67 kg

DRUGS (10)
  1. TAXOL [Suspect]
     Indication: BREAST CANCER METASTATIC
     Route: 042
     Dates: start: 20041124, end: 20041223
  2. NAVELBINE [Suspect]
     Indication: BREAST CANCER METASTATIC
     Route: 042
     Dates: start: 20041124, end: 20041223
  3. NEUPOGEN [Concomitant]
     Route: 058
     Dates: start: 20041124, end: 20050112
  4. ZOLEDRONATE [Concomitant]
     Route: 040
  5. ZANTAC [Concomitant]
  6. ZOLOFT [Concomitant]
  7. CLARITIN [Concomitant]
  8. PERCOCET [Concomitant]
  9. TYLENOL (CAPLET) [Concomitant]
  10. MULTIVITAMIN [Concomitant]

REACTIONS (3)
  - DYSPNOEA [None]
  - PYREXIA [None]
  - THROMBOCYTOPENIA [None]
